FAERS Safety Report 8309745 (Version 2)
Quarter: 2013Q2

REPORT INFORMATION
  Report Type: Spontaneous
  Country: FR (occurrence: FR)
  Receive Date: 20111223
  Receipt Date: 20130620
  Transmission Date: 20140414
  Serious: Yes (Hospitalization, Other)
  Sender: FDA-Public Use
  Company Number: FR-BRISTOL-MYERS SQUIBB COMPANY-16296014

PATIENT
  Age: 53 Year
  Sex: Male

DRUGS (3)
  1. REYATAZ CAPS 150 MG [Suspect]
     Dosage: 1DF:2CAPS
     Route: 048
     Dates: start: 20051219, end: 20111018
  2. ISENTRESS [Concomitant]
     Dates: start: 20100629
  3. INTELENCE [Concomitant]
     Dates: start: 20100629

REACTIONS (3)
  - Nephrolithiasis [Recovered/Resolved]
  - Renal colic [Unknown]
  - Pyelonephritis [Unknown]
